FAERS Safety Report 7788795-0 (Version None)
Quarter: 2011Q3

REPORT INFORMATION
  Report Type: 
  Country: None (occurrence: None)
  Receive Date: 20110930
  Receipt Date: 20110920
  Transmission Date: 20111222
  Serious: Yes (Death, Hospitalization)
  Sender: FDA-Public Use
  Company Number: US-SANOFI-AVENTIS-2011SA044491

PATIENT
  Age: 78 Year
  Sex: Male
  Weight: 131 kg

DRUGS (16)
  1. DRONEDARONE HCL [Suspect]
     Indication: ATRIAL FIBRILLATION
     Route: 048
     Dates: start: 20110126, end: 20110304
  2. SIMVASTATIN [Concomitant]
     Route: 065
  3. COLACE [Concomitant]
  4. IBUPROFEN (ADVIL) [Concomitant]
  5. ASPIRIN [Concomitant]
     Route: 065
  6. ADVAIR DISKUS 100/50 [Concomitant]
     Dosage: DOSE:2 PUFF(S)
  7. HYDRALAZINE HCL [Concomitant]
  8. IMDUR [Concomitant]
  9. ZOCOR [Concomitant]
  10. FUROSEMIDE [Concomitant]
  11. IRON [Concomitant]
  12. WARFARIN SODIUM [Concomitant]
     Route: 065
  13. LABETALOL HCL [Concomitant]
  14. LABETALOL HCL [Concomitant]
     Route: 065
  15. AMLODIPINE BESYLATE [Concomitant]
  16. ALBUTEROL [Concomitant]

REACTIONS (2)
  - CARDIAC FAILURE [None]
  - DEATH [None]
